FAERS Safety Report 9663111 (Version 6)
Quarter: 2014Q2

REPORT INFORMATION
  Report Type: Report from Study
  Country: PL (occurrence: PL)
  Receive Date: 20131101
  Receipt Date: 20140606
  Transmission Date: 20141212
  Serious: Yes (Other)
  Sender: FDA-Public Use
  Company Number: PL-ASTRAZENECA-2013SE79621

PATIENT
  Age: 21866 Day
  Sex: Female

DRUGS (12)
  1. STUDY PROCEDURE [Suspect]
     Indication: CORONARY ARTERY DISEASE
     Route: 065
  2. AZD6140 [Suspect]
     Indication: CORONARY ARTERY DISEASE
     Route: 048
     Dates: start: 20130419, end: 20131004
  3. AZD6140 [Suspect]
     Indication: CORONARY ARTERY DISEASE
     Route: 048
     Dates: end: 20131014
  4. ASA [Suspect]
     Route: 048
  5. ATORIS [Concomitant]
     Indication: CORONARY ARTERY DISEASE
     Route: 048
  6. CONTIX [Concomitant]
     Indication: GASTRIC ULCER
     Route: 048
  7. EFFOX LONG [Concomitant]
     Indication: CORONARY ARTERY DISEASE
     Route: 048
  8. DIAPREL [Concomitant]
     Indication: TYPE 2 DIABETES MELLITUS
     Route: 048
  9. CILAN [Concomitant]
     Indication: HYPERTENSION
     Route: 048
  10. GLUCOPHAGE [Concomitant]
     Indication: TYPE 2 DIABETES MELLITUS
     Route: 048
  11. CORONAL [Concomitant]
     Indication: CORONARY ARTERY DISEASE
     Route: 048
  12. EUTHYROX [Concomitant]
     Indication: HYPOTHYROIDISM
     Route: 048

REACTIONS (2)
  - Iron deficiency anaemia [Recovered/Resolved]
  - Gastritis [Recovered/Resolved]
